FAERS Safety Report 5952259-7 (Version None)
Quarter: 2008Q4

REPORT INFORMATION
  Report Type: 
  Country: None (occurrence: None)
  Receive Date: 20081113
  Receipt Date: 20081110
  Transmission Date: 20090506
  Serious: Yes (Hospitalization)
  Sender: FDA-Public Use
  Company Number: DE-AVENTIS-200812954DE

PATIENT
  Age: 50 Year
  Sex: Female

DRUGS (2)
  1. ARAVA [Suspect]
     Indication: RHEUMATOID ARTHRITIS
     Route: 048
     Dates: start: 20071201
  2. HORMONES NOS [Concomitant]
     Indication: THYROIDECTOMY
     Dosage: DOSE: NOT REPORTED
     Dates: start: 19840101

REACTIONS (2)
  - ATRIAL FLUTTER [None]
  - ATRIAL TACHYCARDIA [None]
